FAERS Safety Report 7429754-7 (Version None)
Quarter: 2011Q2

REPORT INFORMATION
  Report Type: 
  Country: None (occurrence: None)
  Receive Date: 20110421
  Receipt Date: 20110412
  Transmission Date: 20111010
  Serious: Yes (Hospitalization)
  Sender: FDA-Public Use
  Company Number: PHHY2011NL30621

PATIENT
  Sex: Male

DRUGS (2)
  1. ZOMETA [Suspect]
     Indication: PROSTATE CANCER METASTATIC
     Dosage: 4 MG/5 ML PER 6 WEEKS
     Dates: start: 20090910
  2. ZOMETA [Suspect]
     Dosage: 4 MG/5 ML PER 6 WEEKS
     Dates: start: 20110301

REACTIONS (2)
  - LOWER LIMB FRACTURE [None]
  - PAIN IN EXTREMITY [None]
